FAERS Safety Report 6813782-6 (Version None)
Quarter: 2010Q3

REPORT INFORMATION
  Report Type: 
  Country: None (occurrence: None)
  Receive Date: 20100701
  Receipt Date: 20100623
  Transmission Date: 20110219
  Serious: Yes (Other)
  Sender: FDA-Public Use
  Company Number: US-AMGEN-QUU421021

PATIENT
  Sex: Male

DRUGS (2)
  1. ENBREL [Suspect]
     Indication: ANKYLOSING SPONDYLITIS
     Dates: start: 19990101, end: 20100326
  2. METHOTREXATE [Suspect]
     Indication: ANKYLOSING SPONDYLITIS
     Dates: end: 20100326

REACTIONS (3)
  - BLINDNESS [None]
  - CENTRAL NERVOUS SYSTEM LESION [None]
  - HEADACHE [None]
